FAERS Safety Report 12626289 (Version 2)
Quarter: 2018Q4

REPORT INFORMATION
  Report Type: Spontaneous
  Country: US (occurrence: US)
  Receive Date: 20160805
  Receipt Date: 20181123
  Transmission Date: 20190204
  Serious: Yes (Death, Hospitalization, Other)
  Sender: FDA-Public Use
  Company Number: US-AMGEN-USASP2016099148

PATIENT
  Age: 34 Year
  Sex: Male

DRUGS (1)
  1. NEULASTA [Suspect]
     Active Substance: PEGFILGRASTIM
     Indication: NEUTROPENIA
     Dosage: UNK
     Route: 065
     Dates: start: 20121123, end: 20121123

REACTIONS (9)
  - Gastric cancer [Fatal]
  - Dehydration [Recovering/Resolving]
  - Sickle cell anaemia with crisis [Unknown]
  - Metastases to liver [Unknown]
  - Seizure [Unknown]
  - Pain [Unknown]
  - Asthenia [Recovering/Resolving]
  - Blood glucose decreased [Unknown]
  - Infection [Unknown]

NARRATIVE: CASE EVENT DATE: 2012
